FAERS Safety Report 20002399 (Version 1)
Quarter: 2021Q4

REPORT INFORMATION
  Report Type: Spontaneous
  Country: FR (occurrence: FR)
  Receive Date: 20211027
  Receipt Date: 20211027
  Transmission Date: 20220303
  Serious: Yes (Other)
  Sender: FDA-Public Use
  Company Number: 2021A780954

PATIENT
  Age: 41 Year
  Sex: Male
  Weight: 80 kg

DRUGS (2)
  1. QUETIAPINE FUMARATE [Suspect]
     Active Substance: QUETIAPINE FUMARATE
     Indication: Depression
     Dosage: 700 MG/J
     Route: 048
     Dates: start: 20190401
  2. CYMBALTA [Concomitant]
     Active Substance: DULOXETINE HYDROCHLORIDE
     Indication: Depression
     Dosage: 120 MG/J
     Route: 048
     Dates: start: 20190401

REACTIONS (1)
  - Tooth fracture [Recovering/Resolving]

NARRATIVE: CASE EVENT DATE: 20200601
